FAERS Safety Report 12804765 (Version 1)
Quarter: 2016Q4

REPORT INFORMATION
  Report Type: Report from Study
  Country: US (occurrence: US)
  Receive Date: 20161003
  Receipt Date: 20161003
  Transmission Date: 20170207
  Serious: Yes (Other)
  Sender: FDA-Public Use
  Company Number: US-AMGEN-USASL2016133702

PATIENT

DRUGS (1)
  1. KYPROLIS [Suspect]
     Active Substance: CARFILZOMIB
     Indication: PRODUCT USED FOR UNKNOWN INDICATION
     Dosage: UNK
     Route: 065

REACTIONS (45)
  - Polyneuropathy [Unknown]
  - Nasal congestion [Unknown]
  - Bone disorder [Unknown]
  - Asthma [Unknown]
  - Anaemia [Unknown]
  - Arthralgia [Unknown]
  - Cardiomyopathy [Unknown]
  - Cystitis [Unknown]
  - Dermatitis [Unknown]
  - Renal disorder [Unknown]
  - Ureteral disorder [Unknown]
  - Bone density abnormal [Unknown]
  - Atrial fibrillation [Unknown]
  - Blood osmolarity decreased [Unknown]
  - Nephrolithiasis [Unknown]
  - Hypothyroidism [Unknown]
  - Vitamin D deficiency [Unknown]
  - Urinary tract infection [Unknown]
  - Skin disorder [Unknown]
  - Tubulointerstitial nephritis [Unknown]
  - Pulmonary infarction [Unknown]
  - Pulmonary embolism [Unknown]
  - Chronic sinusitis [Unknown]
  - Deficiency anaemia [Unknown]
  - Sleep apnoea syndrome [Unknown]
  - Restless legs syndrome [Unknown]
  - Hyponatraemia [Unknown]
  - Pain [Unknown]
  - Dyspnoea [Unknown]
  - Generalised anxiety disorder [Unknown]
  - Fatigue [Unknown]
  - Adverse drug reaction [Unknown]
  - Gastrooesophageal reflux disease [Unknown]
  - Impaired fasting glucose [Unknown]
  - Skin papilloma [Unknown]
  - Back pain [Unknown]
  - Senile osteoporosis [Unknown]
  - Major depression [Unknown]
  - Vitamin B complex deficiency [Unknown]
  - Neoplasm skin [Unknown]
  - Osteoarthritis [Unknown]
  - Upper respiratory tract infection [Unknown]
  - Cough [Unknown]
  - Nausea [Unknown]
  - Pain in extremity [Unknown]

NARRATIVE: CASE EVENT DATE: 20130214
